FAERS Safety Report 6202643-1 (Version None)
Quarter: 2009Q2

REPORT INFORMATION
  Report Type: 
  Country: None (occurrence: None)
  Receive Date: 20090526
  Receipt Date: 20090514
  Transmission Date: 20091009
  Serious: Yes (Hospitalization)
  Sender: FDA-Public Use
  Company Number: US-ELI_LILLY_AND_COMPANY-US200905003156

PATIENT
  Sex: Male

DRUGS (1)
  1. CYMBALTA [Suspect]
     Dosage: 1 D/F, UNK
     Dates: start: 20080101

REACTIONS (3)
  - DEMENTIA ALZHEIMER'S TYPE [None]
  - DYSPHAGIA [None]
  - URINARY TRACT INFECTION [None]
